FAERS Safety Report 4786555-6 (Version None)
Quarter: 2005Q3

REPORT INFORMATION
  Report Type: 
  Country: None (occurrence: None)
  Receive Date: 20050927
  Receipt Date: 20050628
  Transmission Date: 20060218
  Serious: No
  Sender: FDA-Public Use
  Company Number: USA0507101788

PATIENT
  Age: 11 Year
  Sex: Male

DRUGS (2)
  1. STRATTERA [Suspect]
     Dosage: 80 MG
     Dates: start: 20040601
  2. METADATE (METHYLPHENIDATE HYDROCHLORIDE) [Concomitant]

REACTIONS (1)
  - DRUG WITHDRAWAL SYNDROME [None]
